FAERS Safety Report 4728099-3 (Version None)
Quarter: 2005Q3

REPORT INFORMATION
  Report Type: 
  Country: None (occurrence: None)
  Receive Date: 20050729
  Receipt Date: 20050718
  Transmission Date: 20060218
  Serious: Yes (Other)
  Sender: FDA-Public Use
  Company Number: PHBS2005BE10517

PATIENT
  Age: 59 Year
  Sex: Male

DRUGS (3)
  1. ZOMETA [Suspect]
     Route: 042
     Dates: start: 20030117
  2. 5-FU + CISPLATIN [Concomitant]
     Route: 065
     Dates: start: 20010312, end: 20010730
  3. AREDIA [Suspect]
     Route: 042
     Dates: start: 20010312, end: 20020201

REACTIONS (8)
  - ASEPTIC NECROSIS BONE [None]
  - BONE DISORDER [None]
  - FISTULA [None]
  - JAW FRACTURE [None]
  - MANDIBULECTOMY [None]
  - METASTASES TO BONE [None]
  - OSTEONECROSIS [None]
  - PATHOLOGICAL FRACTURE [None]
